FAERS Safety Report 13082532 (Version 1)
Quarter: 2017Q1

REPORT INFORMATION
  Report Type: Spontaneous
  Country: IN (occurrence: IN)
  Receive Date: 20170103
  Receipt Date: 20170103
  Transmission Date: 20170428
  Serious: Yes (Other)
  Sender: FDA-Public Use
  Company Number: IN-BION-005839

PATIENT
  Age: 19 Year
  Sex: Female

DRUGS (2)
  1. LIDOCAINE HYDROCHLORIDE UNKNOWN PRODUCT [Suspect]
     Active Substance: LIDOCAINE HYDROCHLORIDE
     Indication: LOCAL ANAESTHESIA
     Dosage: PRE-MIXED SOLUTION OF 1% LIGNOCAINE WITH EPINEPHRINE IN A 1:100,000 DILUTION
  2. EPINEPHRINE. [Suspect]
     Active Substance: EPINEPHRINE
     Indication: LOCAL ANAESTHESIA
     Dosage: DOSAGE: 1:100,000 DILUTION

REACTIONS (2)
  - Raynaud^s phenomenon [Recovering/Resolving]
  - Gangrene [Recovering/Resolving]

NARRATIVE: CASE EVENT DATE: 201005
